FAERS Safety Report 7591828-8 (Version None)
Quarter: 2011Q3

REPORT INFORMATION
  Report Type: 
  Country: None (occurrence: None)
  Receive Date: 20110706
  Receipt Date: 20110627
  Transmission Date: 20111222
  Serious: Yes (Other)
  Sender: FDA-Public Use
  Company Number: FR-AMGEN-FRASP2011033449

PATIENT
  Sex: Female

DRUGS (2)
  1. ENBREL [Suspect]
     Indication: ANKYLOSING SPONDYLITIS
     Dosage: 50 MG, WEEKLY
     Dates: start: 20080101
  2. ENBREL [Suspect]
     Dosage: 50 MG EVERY 15 DAYS

REACTIONS (2)
  - ANKYLOSING SPONDYLITIS [None]
  - CONDITION AGGRAVATED [None]
